FAERS Safety Report 5364881-X (Version None)
Quarter: 2007Q2

REPORT INFORMATION
  Report Type: 
  Country: None (occurrence: None)
  Receive Date: 20070606
  Receipt Date: 20060808
  Transmission Date: 20071010
  Serious: Yes (Other)
  Sender: FDA-Public Use
  Company Number: 2006097115

PATIENT
  Age: 57 Year
  Sex: Female
  Weight: 75.2971 kg

DRUGS (1)
  1. ELLENCE [Suspect]
     Indication: BREAST CANCER
     Dosage: 75 MG/M*2(75 MG/M2,QD; 21 DAYS CYCLE)
     Dates: start: 20060522

REACTIONS (3)
  - BLISTER [None]
  - ERYTHEMA [None]
  - EXTRAVASATION [None]
